FAERS Safety Report 24252318 (Version 1)
Quarter: 2024Q3

REPORT INFORMATION
  Report Type: Spontaneous
  Country: TR (occurrence: TR)
  Receive Date: 20240827
  Receipt Date: 20240827
  Transmission Date: 20241016
  Serious: Yes (Other)
  Sender: Halocarbon Life Sciences
  Company Number: TR-HALOCARBON LIFE SCIENCES, LLC-20240800007

PATIENT

DRUGS (1)
  1. SEVOFLURANE [Suspect]
     Active Substance: SEVOFLURANE
     Indication: General anaesthesia
     Route: 042

REACTIONS (1)
  - Interstitial lung disease [Recovered/Resolved]
